FAERS Safety Report 13313861 (Version 2)
Quarter: 2017Q1

REPORT INFORMATION
  Report Type: Report from Study
  Country: KR (occurrence: KR)
  Receive Date: 20170309
  Receipt Date: 20170316
  Transmission Date: 20170428
  Serious: Yes (Hospitalization)
  Sender: FDA-Public Use
  Company Number: US-ASTRAZENECA-2017SE24741

PATIENT
  Age: 73 Year
  Sex: Male
  Weight: 58 kg

DRUGS (10)
  1. ANORO ELLIPTA [Concomitant]
     Active Substance: UMECLIDINIUM BROMIDE\VILANTEROL TRIFENATATE
     Indication: CHRONIC OBSTRUCTIVE PULMONARY DISEASE
     Dosage: UNK
     Dates: start: 20151217
  2. ALVERIX [Concomitant]
     Indication: ABDOMINAL DISTENSION
     Dosage: UNK
     Route: 048
     Dates: start: 20160225
  3. ERDOS [Concomitant]
     Indication: COUGH
     Dosage: 300.0MG UNKNOWN
     Route: 048
     Dates: start: 20131024
  4. ERDOS [Concomitant]
     Indication: PRODUCTIVE COUGH
     Dosage: 300.0MG UNKNOWN
     Route: 048
     Dates: start: 20131024
  5. CALCIO [Concomitant]
     Active Substance: CALCIUM
     Indication: MINERAL SUPPLEMENTATION
     Dosage: 0.25MG UNKNOWN
     Route: 048
     Dates: start: 20151022, end: 20170210
  6. COAPROVEL [Concomitant]
     Active Substance: HYDROCHLOROTHIAZIDE\IRBESARTAN
     Indication: HYPERTENSION
     Dosage: UNK
     Route: 048
     Dates: start: 20081211
  7. EBASTEL [Concomitant]
     Active Substance: EBASTINE
     Indication: RHINITIS
     Dosage: 10.0MG UNKNOWN
     Route: 048
     Dates: start: 20061024
  8. ROFLUMILAST [Suspect]
     Active Substance: ROFLUMILAST
     Indication: CHRONIC OBSTRUCTIVE PULMONARY DISEASE
     Dosage: UNK
     Route: 048
     Dates: start: 20140409
  9. URSA [Concomitant]
     Indication: CHOLECYSTITIS
     Dosage: 200.0MG UNKNOWN
     Route: 048
     Dates: start: 20140401
  10. FEXADIN [Concomitant]
     Indication: SEDATIVE THERAPY
     Dosage: 100.0MG UNKNOWN
     Route: 048
     Dates: start: 20120601

REACTIONS (1)
  - Dyspnoea [Recovered/Resolved]

NARRATIVE: CASE EVENT DATE: 20170101
